FAERS Safety Report 24274856 (Version 3)
Quarter: 2024Q3

REPORT INFORMATION
  Report Type: Spontaneous
  Country: US (occurrence: US)
  Receive Date: 20240902
  Receipt Date: 20240905
  Transmission Date: 20241016
  Serious: No
  Sender: JOHNSON AND JOHNSON
  Company Number: US-JNJFOC-20240878085

PATIENT

DRUGS (6)
  1. SPRAVATO [Suspect]
     Active Substance: ESKETAMINE
     Indication: Product used for unknown indication
  2. LAMICTAL [Concomitant]
     Active Substance: LAMOTRIGINE
  3. KLONOPIN [Concomitant]
     Active Substance: CLONAZEPAM
  4. VYVANSE [Concomitant]
     Active Substance: LISDEXAMFETAMINE DIMESYLATE
  5. WELLBUTRIN [Concomitant]
     Active Substance: BUPROPION HYDROCHLORIDE
  6. XANAX [Concomitant]
     Active Substance: ALPRAZOLAM

REACTIONS (10)
  - Therapeutic response delayed [Unknown]
  - Crying [Unknown]
  - Anxiety [Unknown]
  - Headache [Recovering/Resolving]
  - Feeling abnormal [Unknown]
  - Fear [Unknown]
  - Nasal congestion [Unknown]
  - Fumbling [Unknown]
  - Boredom [Unknown]
  - Musculoskeletal stiffness [Unknown]
